FAERS Safety Report 16947060 (Version 1)
Quarter: 2019Q4

REPORT INFORMATION
  Report Type: Spontaneous
  Country: US (occurrence: US)
  Receive Date: 20191022
  Receipt Date: 20191022
  Transmission Date: 20200122
  Serious: No
  Sender: FDA-Public Use
  Company Number: US-PFIZER INC-2019453300

PATIENT
  Age: 81 Year
  Sex: Male
  Weight: 95.25 kg

DRUGS (1)
  1. PREGABALIN. [Suspect]
     Active Substance: PREGABALIN
     Indication: PAIN IN EXTREMITY
     Dosage: 450 MG, DAILY [3 CAPSULES BY MOUTH DAILY]
     Route: 048
     Dates: start: 20191006, end: 20191014

REACTIONS (1)
  - Pain in extremity [Unknown]
